FAERS Safety Report 12282077 (Version 2)
Quarter: 2016Q2

REPORT INFORMATION
  Report Type: Report from Study
  Country: US (occurrence: US)
  Receive Date: 20160419
  Receipt Date: 20160503
  Transmission Date: 20160815
  Serious: Yes (Other)
  Sender: FDA-Public Use
  Company Number: US-GILEAD-2016-0208659

PATIENT
  Age: 76 Year
  Sex: Male

DRUGS (35)
  1. CEFDINIR. [Concomitant]
     Active Substance: CEFDINIR
  2. HYDROCODONE [Concomitant]
     Active Substance: HYDROCODONE
  3. GARLIC                             /01570501/ [Concomitant]
     Active Substance: GARLIC
  4. PROAIR HFA [Concomitant]
     Active Substance: ALBUTEROL SULFATE
  5. OMEPRAZOLE. [Concomitant]
     Active Substance: OMEPRAZOLE
  6. PREDNISONE. [Concomitant]
     Active Substance: PREDNISONE
  7. ACETAMINOPHEN. [Concomitant]
     Active Substance: ACETAMINOPHEN
  8. NASONEX [Concomitant]
     Active Substance: MOMETASONE FUROATE
  9. B COMPLEX                          /00322001/ [Concomitant]
  10. VITAMIN C [Concomitant]
     Active Substance: ASCORBIC ACID
  11. VALSARTAN. [Concomitant]
     Active Substance: VALSARTAN
  12. ALBUTEROL                          /00139501/ [Concomitant]
     Active Substance: ALBUTEROL
  13. LEVOFLOXACIN. [Concomitant]
     Active Substance: LEVOFLOXACIN
  14. GRAPE SEED                         /01364603/ [Concomitant]
  15. VITAMIN B COMPLEX [Concomitant]
     Active Substance: CYANOCOBALAMIN\DEXPANTHENOL\NIACINAMIDE\PYRIDOXINE HYDROCHLORIDE\RIBOFLAVIN 5^-PHOSPHATE SODIUM\THIAMINE HYDROCHLORIDE\VITAMIN B COMPLEX
  16. FOLIC ACID. [Concomitant]
     Active Substance: FOLIC ACID
  17. FLUTICASONE [Concomitant]
     Active Substance: FLUTICASONE\FLUTICASONE PROPIONATE
  18. TORSEMIDE. [Concomitant]
     Active Substance: TORSEMIDE
  19. METOPROLOL SUCCINATE. [Concomitant]
     Active Substance: METOPROLOL SUCCINATE
  20. ATORVASTATIN [Concomitant]
     Active Substance: ATORVASTATIN
  21. TRIAMTERENE AND HYDROCHLOROTHIAZIDE [Concomitant]
     Active Substance: HYDROCHLOROTHIAZIDE\TRIAMTERENE
  22. NIACIN. [Concomitant]
     Active Substance: NIACIN
  23. GLUCOSAMINE [Concomitant]
     Active Substance: GLUCOSAMINE
  24. ASPIRIN                            /00002701/ [Concomitant]
     Active Substance: ASPIRIN
  25. BROVANA [Concomitant]
     Active Substance: ARFORMOTEROL TARTRATE
  26. AMBRISENTAN [Suspect]
     Active Substance: AMBRISENTAN
     Indication: PULMONARY HYPERTENSION
     Dosage: 5 MG, QD
     Route: 048
     Dates: start: 20150423
  27. SAW PALMETTO                       /00833501/ [Concomitant]
     Active Substance: SAW PALMETTO
  28. TAMSULOSIN [Concomitant]
     Active Substance: TAMSULOSIN
  29. MULTIVITAMINS [Concomitant]
     Active Substance: VITAMINS
  30. CALCIUM CARBONATE AND VITAMIN D [Concomitant]
  31. ADCIRCA [Suspect]
     Active Substance: TADALAFIL
     Indication: PRODUCT USED FOR UNKNOWN INDICATION
     Dosage: 40 MG, QD
     Route: 048
  32. METFORMIN [Concomitant]
     Active Substance: METFORMIN HYDROCHLORIDE
  33. BENZONATATE. [Concomitant]
     Active Substance: BENZONATATE
  34. GLUTATHIONE [Concomitant]
     Active Substance: GLUTATHIONE
  35. CHEST CONGESTION                   /00048001/ [Concomitant]

REACTIONS (1)
  - Pneumonia [Recovered/Resolved]

NARRATIVE: CASE EVENT DATE: 20160411
